FAERS Safety Report 15554616 (Version 13)
Quarter: 2022Q1

REPORT INFORMATION
  Report Type: Report from Study
  Country: CN (occurrence: None)
  Receive Date: 20181026
  Receipt Date: 20220323
  Transmission Date: 20220423
  Serious: Yes (Hospitalization)
  Sender: FDA-Public Use
  Company Number: CN-ROCHE-2202843

PATIENT
  Age: 50 Year
  Sex: Female
  Weight: 56 kg

DRUGS (27)
  1. ATEZOLIZUMAB [Suspect]
     Active Substance: ATEZOLIZUMAB
     Indication: Ovarian cancer
     Dosage: DATE OF MOST RECENT DOSE (1200 MG) OF ATEZOLIZUMAB PRIOR TO SAE ONSET: 04/OCT/2018
     Route: 041
     Dates: start: 20180912
  2. BEVACIZUMAB [Suspect]
     Active Substance: BEVACIZUMAB
     Indication: Ovarian cancer
     Dosage: DATE OF MOST RECENT DOSE OF BEVACIZUMAB (825 MG) PRIOR TO SAE ONSET: 04/OCT/2018
     Route: 042
     Dates: start: 20181004
  3. PACLITAXEL [Suspect]
     Active Substance: PACLITAXEL
     Indication: Ovarian cancer
     Dosage: DATE OF MOST RECENT DOSE OF PACLITAXEL (270 MG) PRIOR TO AE ONSET: 04/OCT/2018
     Route: 042
     Dates: start: 20180912
  4. CARBOPLATIN [Suspect]
     Active Substance: CARBOPLATIN
     Indication: Ovarian cancer
     Dosage: DATE OF MOST RECENT DOSE OF CARBOPLATIN (820 MG) PRIOR TO AE ONSET: 04/OCT/2018
     Route: 042
     Dates: start: 20180912
  5. DEXAMETHASONE ACETATE [Concomitant]
     Active Substance: DEXAMETHASONE ACETATE
     Route: 048
     Dates: start: 20181003, end: 20181004
  6. CIMETIDINE [Concomitant]
     Active Substance: CIMETIDINE
     Dates: start: 20181004, end: 20181004
  7. CIMETIDINE [Concomitant]
     Active Substance: CIMETIDINE
     Dates: start: 20181022, end: 20181023
  8. DIPHENHYDRAMINE HYDROCHLORIDE [Concomitant]
     Active Substance: DIPHENHYDRAMINE HYDROCHLORIDE
     Dates: start: 20181004, end: 20181004
  9. VITAMIN B6 [Concomitant]
     Active Substance: PYRIDOXINE HYDROCHLORIDE
     Dates: start: 20181004, end: 20181004
  10. POTASSIUM CHLORIDE [Concomitant]
     Active Substance: POTASSIUM CHLORIDE
     Dates: start: 20181004, end: 20181004
  11. POTASSIUM CHLORIDE [Concomitant]
     Active Substance: POTASSIUM CHLORIDE
     Dosage: POTASSIUM SUPPLEMENT
     Dates: start: 20181020, end: 20181023
  12. POTASSIUM CHLORIDE [Concomitant]
     Active Substance: POTASSIUM CHLORIDE
     Dosage: FILL THE ELECTROLYTE
     Dates: start: 20181020, end: 20181020
  13. POTASSIUM CHLORIDE [Concomitant]
     Active Substance: POTASSIUM CHLORIDE
     Dates: start: 20181021, end: 20181021
  14. VITAMIN C [Concomitant]
     Active Substance: ASCORBIC ACID
     Dates: start: 20181004, end: 20181004
  15. CHLORHEXIDINE GLUCONATE [Concomitant]
     Active Substance: CHLORHEXIDINE GLUCONATE
     Dosage: COMPOUND GARGLE SOLUTION?ORAL NURSING
     Dates: start: 20181020, end: 20181023
  16. ACETYLCYSTEINE [Concomitant]
     Active Substance: ACETYLCYSTEINE
     Indication: Productive cough
     Dates: start: 20181020, end: 20181023
  17. OPRELVEKIN [Concomitant]
     Active Substance: OPRELVEKIN
     Dosage: LITRES OF PLATELETS
     Dates: start: 20181020, end: 20181023
  18. OPRELVEKIN [Concomitant]
     Active Substance: OPRELVEKIN
     Dates: start: 20181023, end: 20181026
  19. METOPROLOL TARTRATE [Concomitant]
     Active Substance: METOPROLOL TARTRATE
     Dosage: HEART RATE REDUCTION
     Dates: start: 20181020, end: 20181021
  20. METOPROLOL TARTRATE [Concomitant]
     Active Substance: METOPROLOL TARTRATE
     Dates: start: 20181021, end: 20181023
  21. METOPROLOL TARTRATE [Concomitant]
     Active Substance: METOPROLOL TARTRATE
     Dates: start: 20181021, end: 20181021
  22. TRIMETAZIDINE DIHYDROCHLORIDE [Concomitant]
     Active Substance: TRIMETAZIDINE DIHYDROCHLORIDE
     Indication: Blood pressure decreased
     Dates: start: 20181021, end: 20181023
  23. DEXTROSE [Concomitant]
     Active Substance: DEXTROSE
     Dosage: FILL THE ELECTROLYTE
     Dates: start: 20181020, end: 20181020
  24. ESMOLOL HYDROCHLORIDE [Concomitant]
     Active Substance: ESMOLOL HYDROCHLORIDE
     Indication: Arrhythmia
     Dates: start: 20181020, end: 20181020
  25. FUROSEMIDE [Concomitant]
     Active Substance: FUROSEMIDE
     Indication: Polyuria
     Dates: start: 20181021, end: 20181023
  26. METHYLCOBALAMIN [Concomitant]
     Active Substance: METHYLCOBALAMIN
     Indication: Hypoaesthesia
     Dosage: VEGETATIVE NERVE (NUMBNESS)
     Dates: start: 20181025
  27. HUMAN RED BLOOD CELL [Concomitant]
     Active Substance: HUMAN RED BLOOD CELL
     Dosage: IRRADIATION SUSPENDED RED BLOOD CELLS?ENRICH THE BLOOD
     Dates: start: 20181021, end: 20181022

REACTIONS (1)
  - Pneumonia [Recovered/Resolved]

NARRATIVE: CASE EVENT DATE: 20181017
